FAERS Safety Report 10958122 (Version 1)
Quarter: 2015Q1

REPORT INFORMATION
  Report Type: Spontaneous
  Country: US (occurrence: US)
  Receive Date: 20150326
  Receipt Date: 20150326
  Transmission Date: 20150721
  Serious: No
  Sender: FDA-Public Use
  Company Number: US-TEVA-550429USA

PATIENT
  Age: 27 Year
  Sex: Female
  Weight: 67.65 kg

DRUGS (1)
  1. PARAGARD T 380A [Suspect]
     Active Substance: COPPER
     Indication: CONTRACEPTION
     Route: 015
     Dates: start: 20141201, end: 20150305

REACTIONS (3)
  - Pelvic discomfort [Unknown]
  - Device expulsion [Recovered/Resolved]
  - Dyspareunia [Unknown]

NARRATIVE: CASE EVENT DATE: 20150212
